FAERS Safety Report 9540551 (Version 3)
Quarter: 2013Q4

REPORT INFORMATION
  Report Type: Spontaneous
  Country: US (occurrence: US)
  Receive Date: 20130920
  Receipt Date: 20131227
  Transmission Date: 20140711
  Serious: Yes (Death, Hospitalization)
  Sender: FDA-Public Use
  Company Number: US-009507513-1309USA005266

PATIENT
  Sex: Female
  Weight: 176.42 kg

DRUGS (6)
  1. DULERA [Suspect]
     Indication: ASTHMA
     Dosage: 1 PUFF, BID
     Route: 055
     Dates: start: 20130610
  2. PREDNISONE [Concomitant]
  3. ALBUTEROL SULFATE [Concomitant]
  4. IPRATROPIUM BROMIDE [Concomitant]
  5. CEPHALEXIN [Concomitant]
  6. ALEVE [Concomitant]

REACTIONS (2)
  - Pulmonary thrombosis [Fatal]
  - Underdose [Unknown]
